FAERS Safety Report 5136785-9 (Version None)
Quarter: 2006Q4

REPORT INFORMATION
  Report Type: 
  Country: None (occurrence: None)
  Receive Date: 20061018
  Receipt Date: 20061003
  Transmission Date: 20070319
  Serious: Yes (Other)
  Sender: FDA-Public Use
  Company Number: 200610163BBE

PATIENT
  Sex: Female

DRUGS (6)
  1. PLASBUMIN-5 [Suspect]
     Indication: GUILLAIN-BARRE SYNDROME
     Dosage: SEE IMAGE
     Dates: start: 20050319
  2. PLASBUMIN-5 [Suspect]
     Indication: GUILLAIN-BARRE SYNDROME
     Dosage: SEE IMAGE
     Dates: start: 20050321
  3. PLASBUMIN-5 [Suspect]
     Indication: GUILLAIN-BARRE SYNDROME
     Dosage: SEE IMAGE
     Dates: start: 20050323
  4. ALBUMIN (HUMAN) [Suspect]
  5. ALBUMIN (HUMAN) [Suspect]
  6. ALBUMIN (HUMAN) [Suspect]

REACTIONS (2)
  - CHEST DISCOMFORT [None]
  - HEPATITIS C [None]
